FAERS Safety Report 10029662 (Version 1)
Quarter: 2014Q1

REPORT INFORMATION
  Report Type: Spontaneous
  Country: US (occurrence: None)
  Receive Date: 20140321
  Receipt Date: 20140321
  Transmission Date: 20141002
  Serious: Yes (Disabling)
  Sender: FDA-Public Use
  Company Number: None

PATIENT
  Age: 37 Year
  Sex: Female
  Weight: 65.77 kg

DRUGS (1)
  1. LYZA [Suspect]
     Indication: CONTRACEPTION
     Route: 048
     Dates: start: 20140318, end: 20140319

REACTIONS (7)
  - Pruritus generalised [None]
  - Lethargy [None]
  - Impaired work ability [None]
  - Thinking abnormal [None]
  - Impaired driving ability [None]
  - Coeliac disease [None]
  - Product substitution issue [None]
